FAERS Safety Report 6494322-0 (Version None)
Quarter: 2009Q4

REPORT INFORMATION
  Report Type: 
  Country: None (occurrence: None)
  Receive Date: 20091214
  Receipt Date: 20090206
  Transmission Date: 20100525
  Serious: No
  Sender: FDA-Public Use
  Company Number: US-BRISTOL-MYERS SQUIBB COMPANY-14497499

PATIENT
  Sex: Male
  Weight: 92 kg

DRUGS (6)
  1. ABILIFY [Suspect]
     Indication: DEPRESSION
  2. CYMBALTA [Suspect]
     Indication: DEPRESSION
  3. PRILOSEC [Concomitant]
  4. SKELAXIN [Concomitant]
  5. VISTARIL [Concomitant]
  6. SUBOXONE [Concomitant]

REACTIONS (6)
  - DIPLOPIA [None]
  - JOINT STIFFNESS [None]
  - MASKED FACIES [None]
  - MUSCULOSKELETAL STIFFNESS [None]
  - TREMOR [None]
  - VISION BLURRED [None]
